FAERS Safety Report 4276897-5 (Version None)
Quarter: 2004Q1

REPORT INFORMATION
  Report Type: 
  Country: None (occurrence: None)
  Receive Date: 20040120
  Receipt Date: 20040107
  Transmission Date: 20041129
  Serious: Yes (Other)
  Sender: FDA-Public Use
  Company Number: S03-USA-04554-01

PATIENT
  Age: 46 Year
  Sex: Female
  Weight: 91.173 kg

DRUGS (1)
  1. CELEXA [Suspect]
     Indication: DEPRESSION
     Dosage: 20 MG ONCE PO
     Route: 048
     Dates: start: 20030601, end: 20030601

REACTIONS (10)
  - ATAXIA [None]
  - BRADYPHRENIA [None]
  - CARDIAC MURMUR [None]
  - CEREBRAL INFARCTION [None]
  - EYELID PTOSIS [None]
  - FATIGUE [None]
  - LETHARGY [None]
  - MEMORY IMPAIRMENT [None]
  - PROTEIN S INCREASED [None]
  - SENSORY DISTURBANCE [None]
